FAERS Safety Report 25827015 (Version 2)
Quarter: 2025Q3

REPORT INFORMATION
  Report Type: Spontaneous
  Country: CN (occurrence: CN)
  Receive Date: 20250920
  Receipt Date: 20250929
  Transmission Date: 20251021
  Serious: Yes (Hospitalization, Other)
  Sender: MACLEODS
  Company Number: CN-MACLEODS PHARMA-MAC2025055277

PATIENT

DRUGS (3)
  1. QUETIAPINE [Suspect]
     Active Substance: QUETIAPINE
     Indication: Bipolar disorder
     Dosage: 200 MG/NIGHT FOR THE PAST DECADE
     Route: 065
  2. MEGESTROL ACETATE [Suspect]
     Active Substance: MEGESTROL ACETATE
     Indication: Endometrial hyperplasia
     Route: 065
  3. MEGESTROL ACETATE [Suspect]
     Active Substance: MEGESTROL ACETATE
     Route: 065

REACTIONS (2)
  - Secondary adrenocortical insufficiency [Recovered/Resolved]
  - Mineralocorticoid deficiency [Recovered/Resolved]
